FAERS Safety Report 23875483 (Version 1)
Quarter: 2024Q2

REPORT INFORMATION
  Report Type: Spontaneous
  Country: US (occurrence: None)
  Receive Date: 20240520
  Receipt Date: 20240520
  Transmission Date: 20240716
  Serious: Yes (Hospitalization)
  Sender: FDA-Public Use
  Company Number: None

PATIENT
  Age: 18 Year
  Sex: Male

DRUGS (1)
  1. GENOTROPIN [Suspect]
     Active Substance: SOMATROPIN
     Indication: Hypopituitarism
     Dosage: OTHER QUANTITY : 1.4MG;?FREQUENCY : DAILY;?

REACTIONS (3)
  - Urinary tract infection [None]
  - Pneumonia [None]
  - Adrenal disorder [None]
